FAERS Safety Report 4476596-0 (Version None)
Quarter: 2004Q4

REPORT INFORMATION
  Report Type: 
  Country: None (occurrence: None)
  Receive Date: 20041013
  Receipt Date: 20040928
  Transmission Date: 20050328
  Serious: Yes (Hospitalization)
  Sender: FDA-Public Use
  Company Number: F01200402965

PATIENT
  Age: 46 Year
  Sex: Female
  Weight: 81.5 kg

DRUGS (7)
  1. OXALIPLATIN SOLUTION 130 MG/M2 [Suspect]
     Indication: NON-SMALL CELL LUNG CANCER
     Dosage: 130 MG/M2 Q3W INTRAVENOUS NOS
     Route: 042
     Dates: start: 20040916, end: 20040916
  2. GEMICTABINE SOLUTION 1000 MG/M2 [Suspect]
     Dosage: 1000 MG/M2 Q3W - INTRAVENOUS NOS
     Route: 042
     Dates: start: 20040922, end: 20040922
  3. VERAPAMIL [Concomitant]
  4. MELOXICAM [Concomitant]
  5. HYDROCODONE TARTRATE/PARACETAMOL [Concomitant]
  6. DIAZEPAM [Concomitant]
  7. FENTANYL [Concomitant]

REACTIONS (10)
  - ABDOMINAL PAIN [None]
  - DIARRHOEA HAEMORRHAGIC [None]
  - ELECTROCARDIOGRAM ST-T CHANGE [None]
  - HAEMATURIA [None]
  - HYPOKALAEMIA [None]
  - NAUSEA [None]
  - PANCYTOPENIA [None]
  - PYREXIA [None]
  - SINUS TACHYCARDIA [None]
  - VOMITING [None]
